FAERS Safety Report 13409800 (Version 1)
Quarter: 2017Q2

REPORT INFORMATION
  Report Type: Spontaneous
  Country: HR (occurrence: HR)
  Receive Date: 20170406
  Receipt Date: 20170406
  Transmission Date: 20170830
  Serious: Yes (Life-Threatening)
  Sender: FDA-Public Use
  Company Number: HR-EMD SERONO-E2B_80063849

PATIENT
  Age: 46 Year
  Sex: Male
  Weight: 85 kg

DRUGS (1)
  1. REBIF [Suspect]
     Active Substance: INTERFERON BETA-1A
     Indication: PRODUCT USED FOR UNKNOWN INDICATION
     Dosage: PRE FILLED SYRINGES
     Route: 058
     Dates: start: 2011, end: 2016

REACTIONS (2)
  - Drug use disorder [Recovered/Resolved]
  - Suicide attempt [Recovered/Resolved]

NARRATIVE: CASE EVENT DATE: 20161218
